FAERS Safety Report 9057471 (Version 1)
Quarter: 2013Q1

REPORT INFORMATION
  Report Type: Spontaneous
  Country: US (occurrence: US)
  Receive Date: 20130204
  Receipt Date: 20130204
  Transmission Date: 20140127
  Serious: No
  Sender: FDA-Public Use
  Company Number: US-009507513-1302USA001101

PATIENT
  Sex: Female

DRUGS (1)
  1. MIRALAX [Suspect]
     Indication: PRODUCT USED FOR UNKNOWN INDICATION
     Dosage: HALF A CAP, ONCE
     Route: 048
     Dates: start: 20121115

REACTIONS (3)
  - Hypertension [Unknown]
  - Flatulence [Unknown]
  - Underdose [Unknown]
